FAERS Safety Report 6007770-X (Version None)
Quarter: 2008Q4

REPORT INFORMATION
  Report Type: 
  Country: None (occurrence: None)
  Receive Date: 20081217
  Receipt Date: 20080714
  Transmission Date: 20090506
  Serious: No
  Sender: FDA-Public Use
  Company Number: US-ASTRAZENECA-2008UW11145

PATIENT
  Age: 75 Year
  Sex: Male
  Weight: 74.8 kg

DRUGS (7)
  1. CRESTOR [Suspect]
     Indication: HYPERCHOLESTEROLAEMIA
     Route: 048
     Dates: start: 20080317
  2. DIOVAN [Concomitant]
  3. NEXIUM [Concomitant]
  4. GLYBURIDE [Concomitant]
  5. ACTOS [Concomitant]
  6. TRICOR [Concomitant]
  7. LOPRESSOR [Concomitant]

REACTIONS (4)
  - BLOOD TRIGLYCERIDES INCREASED [None]
  - HIGH DENSITY LIPOPROTEIN DECREASED [None]
  - MUSCULOSKELETAL PAIN [None]
  - VERY LOW DENSITY LIPOPROTEIN INCREASED [None]
